FAERS Safety Report 4981108-9 (Version None)
Quarter: 2006Q2

REPORT INFORMATION
  Report Type: 
  Country: None (occurrence: None)
  Receive Date: 20060424
  Receipt Date: 20060413
  Transmission Date: 20061013
  Serious: Yes (Hospitalization)
  Sender: FDA-Public Use
  Company Number: US-JNJFOC-20051200051

PATIENT
  Sex: Female
  Weight: 101.61 kg

DRUGS (8)
  1. ORTHO EVRA [Suspect]
     Indication: CONTRACEPTION
     Route: 062
  2. BENTYL [Concomitant]
  3. ZYRTEC [Concomitant]
  4. MIDRIN [Concomitant]
  5. MIDRIN [Concomitant]
  6. MIDRIN [Concomitant]
  7. ZITHROMAX [Concomitant]
     Route: 048
     Dates: start: 20031104, end: 20031109
  8. ZITHROMAX [Concomitant]
     Route: 048
     Dates: start: 20031104, end: 20031109

REACTIONS (29)
  - ANAEMIA [None]
  - ASTHMA [None]
  - BACK PAIN [None]
  - BLOOD PH INCREASED [None]
  - BRONCHITIS [None]
  - CAESAREAN SECTION [None]
  - CHILLS [None]
  - DIARRHOEA [None]
  - DRUG HYPERSENSITIVITY [None]
  - EPISTAXIS [None]
  - HYPERSENSITIVITY [None]
  - MALAISE [None]
  - MITRAL VALVE INCOMPETENCE [None]
  - MYOCARDIAL ISCHAEMIA [None]
  - NAUSEA [None]
  - PLEURISY [None]
  - PNEUMONIA [None]
  - PREGNANCY [None]
  - PREMATURE BABY [None]
  - PULMONARY EMBOLISM [None]
  - PULMONARY HYPERTENSION [None]
  - PYELONEPHRITIS [None]
  - STAPHYLOCOCCAL INFECTION [None]
  - STRESS [None]
  - SWELLING [None]
  - TACHYCARDIA [None]
  - TRICUSPID VALVE INCOMPETENCE [None]
  - VOMITING [None]
  - WHITE BLOOD CELL COUNT INCREASED [None]
